FAERS Safety Report 6330966-4 (Version None)
Quarter: 2009Q3

REPORT INFORMATION
  Report Type: 
  Country: None (occurrence: None)
  Receive Date: 20090827
  Receipt Date: 20090817
  Transmission Date: 20100115
  Serious: Yes (Death)
  Sender: FDA-Public Use
  Company Number: EG-AVENTIS-200919142GDDC

PATIENT
  Age: 60 Year
  Sex: Male

DRUGS (1)
  1. ARAVA [Suspect]
     Dosage: DOSE: 1 TABLET
     Route: 048
     Dates: start: 20081231, end: 20090101

REACTIONS (1)
  - DEATH [None]
